FAERS Safety Report 5399977-X (Version None)
Quarter: 2007Q3

REPORT INFORMATION
  Report Type: 
  Country: None (occurrence: None)
  Receive Date: 20070726
  Receipt Date: 20070726
  Transmission Date: 20080115
  Serious: No
  Sender: FDA-Public Use
  Company Number: None

PATIENT
  Age: 91 Year
  Sex: Male
  Weight: 83.9154 kg

DRUGS (10)
  1. CLINDAMYCIN HCL [Suspect]
     Dosage: 600 MG PO Q8H
     Route: 048
  2. PREDNISONE TAB [Concomitant]
  3. ALBUTEROL [Concomitant]
  4. K-DUR 10 [Concomitant]
  5. IMDUR [Concomitant]
  6. LUMIGAN [Concomitant]
  7. SPIRIVA [Concomitant]
  8. FUROSEMIDE [Concomitant]
  9. DOCUSATE [Concomitant]
  10. DOXYCYCLINE [Concomitant]

REACTIONS (2)
  - GASTROINTESTINAL HAEMORRHAGE [None]
  - OESOPHAGITIS [None]
